FAERS Safety Report 11536370 (Version 1)
Quarter: 2015Q3

REPORT INFORMATION
  Report Type: Spontaneous
  Country: US (occurrence: US)
  Receive Date: 20150922
  Receipt Date: 20150922
  Transmission Date: 20151125
  Serious: No
  Sender: FDA-Public Use
  Company Number: ALCN2014US006086

PATIENT
  Age: 52 Year
  Sex: Female

DRUGS (2)
  1. TOBRADEX [Suspect]
     Active Substance: DEXAMETHASONE\TOBRAMYCIN
     Indication: EYE INFECTION
     Dosage: UNK
     Route: 047
  2. BLACK COHOSH [Concomitant]
     Active Substance: BLACK COHOSH
     Dosage: 540 MG, QD
     Route: 048

REACTIONS (3)
  - Urticaria [Recovering/Resolving]
  - Swelling face [Recovered/Resolved]
  - Paraesthesia oral [Recovered/Resolved]
